FAERS Safety Report 26120992 (Version 1)
Quarter: 2025Q4

REPORT INFORMATION
  Report Type: Spontaneous
  Country: US (occurrence: None)
  Receive Date: 20251203
  Receipt Date: 20251203
  Transmission Date: 20260117
  Serious: Yes (Other)
  Sender: FDA-CTU
  Company Number: None

PATIENT
  Age: 63 Year
  Sex: Female

DRUGS (10)
  1. KESIMPTA [Suspect]
     Active Substance: OFATUMUMAB
     Indication: Multiple sclerosis
  2. CARVEDILOL [Concomitant]
     Active Substance: CARVEDILOL
  3. FOLIC ACID 1 MG [Concomitant]
  4. POTASSIUM CITRATE [Concomitant]
     Active Substance: POTASSIUM CITRATE
  5. BACLOFEN [Concomitant]
     Active Substance: BACLOFEN
  6. METFORMIN [Concomitant]
     Active Substance: METFORMIN HYDROCHLORIDE
  7. ASAMANEX 110MG [Concomitant]
  8. ASPIRIN [Concomitant]
     Active Substance: ASPIRIN
  9. ATORVASTATIN [Concomitant]
     Active Substance: ATORVASTATIN
  10. ENTRESTO [Concomitant]
     Active Substance: SACUBITRIL\VALSARTAN

REACTIONS (2)
  - Vaginal haemorrhage [None]
  - Therapy cessation [None]

NARRATIVE: CASE EVENT DATE: 20251125
